FAERS Safety Report 16267797 (Version 3)
Quarter: 2019Q2

REPORT INFORMATION
  Report Type: Spontaneous
  Country: US (occurrence: US)
  Receive Date: 20190503
  Receipt Date: 20190611
  Transmission Date: 20190711
  Serious: Yes (Other)
  Sender: FDA-Public Use
  Company Number: US-LUPIN HEALTHCARE (UK) LIMITED-2019-02614

PATIENT
  Sex: Male
  Weight: 108.84 kg

DRUGS (2)
  1. LEVETIRACETAM EXTENDED RELEASE TABLET USP, 750 MG [Suspect]
     Active Substance: LEVETIRACETAM
     Indication: EPILEPSY
     Dosage: 1500 MILLIGRAM, BID
     Route: 048
     Dates: start: 201903, end: 201904
  2. LEVETIRACETAM EXTENDED RELEASE TABLET USP, 750 MG [Suspect]
     Active Substance: LEVETIRACETAM
     Indication: SEIZURE
     Dosage: 1500 MILLIGRAM, BID
     Route: 048
     Dates: start: 201901

REACTIONS (2)
  - Seizure [Not Recovered/Not Resolved]
  - Glassy eyes [Not Recovered/Not Resolved]
